FAERS Safety Report 8990216 (Version 1)
Quarter: 2012Q4

REPORT INFORMATION
  Report Type: 
  Country: IT (occurrence: IT)
  Receive Date: 20121228
  Receipt Date: 20121228
  Transmission Date: 20130627
  Serious: Yes (Hospitalization)
  Sender: FDA-Public Use
  Company Number: IT-WATSON-2012-22965

PATIENT

DRUGS (3)
  1. ENALAPRIL [Suspect]
     Indication: PRODUCT USED FOR UNKNOWN INDICATION
     Dosage: 14 DF, Interval=1 Total
     Route: 048
     Dates: start: 20121209, end: 20121209
  2. TRIAZOLAM [Suspect]
     Indication: PRODUCT USED FOR UNKNOWN INDICATION
     Dosage: 10 DF, Interval=1 Total
     Route: 048
     Dates: start: 20121209, end: 20121209
  3. CARBOLITHIUM [Suspect]
     Indication: PRODUCT USED FOR UNKNOWN INDICATION
     Dosage: 60 DF, Interval=1 Total
     Route: 048
     Dates: start: 20121209, end: 20121209

REACTIONS (7)
  - Bradykinesia [Unknown]
  - Bradyphrenia [Unknown]
  - Intentional self-injury [Unknown]
  - Sopor [Unknown]
  - Overdose [Unknown]
  - Intentional drug misuse [None]
  - Refusal of treatment by patient [None]
